FAERS Safety Report 13753839 (Version 1)
Quarter: 2017Q3

REPORT INFORMATION
  Report Type: Spontaneous
  Country: FR (occurrence: FR)
  Receive Date: 20170714
  Receipt Date: 20170714
  Transmission Date: 20171127
  Serious: Yes (Hospitalization)
  Sender: FDA-Public Use
  Company Number: FR-SA-2017SA126725

PATIENT
  Age: 17 Year
  Sex: Female
  Weight: 72 kg

DRUGS (2)
  1. MYOZYME [Suspect]
     Active Substance: ALGLUCOSIDASE ALFA
     Indication: GLYCOGEN STORAGE DISEASE TYPE II
     Route: 041
     Dates: start: 20120321, end: 20160824
  2. KEPPRA [Concomitant]
     Active Substance: LEVETIRACETAM
     Indication: EPILEPSY
     Dosage: DOSE: 500+750 MG
     Route: 065
     Dates: start: 2012

REACTIONS (4)
  - Tachypnoea [Recovered/Resolved]
  - Dyspnoea [Recovered/Resolved]
  - Pleural effusion [Recovered/Resolved]
  - Chest pain [Recovered/Resolved]

NARRATIVE: CASE EVENT DATE: 20160828
